FAERS Safety Report 16755058 (Version 1)
Quarter: 2019Q3

REPORT INFORMATION
  Report Type: Spontaneous
  Country: ES (occurrence: ES)
  Receive Date: 20190829
  Receipt Date: 20190829
  Transmission Date: 20191005
  Serious: Yes (Hospitalization)
  Sender: FDA-Public Use
  Company Number: ES-009507513-1908ESP010124

PATIENT
  Age: 29 Year
  Sex: Male

DRUGS (1)
  1. PROPECIA 1 MG COMPRIMIDOS RECUBIERTOS CON PEL?CULA [Suspect]
     Active Substance: FINASTERIDE
     Dosage: 1 MILLIGRAM, Q24H
     Route: 048
     Dates: start: 20090211, end: 2016

REACTIONS (1)
  - Seminoma [Recovering/Resolving]

NARRATIVE: CASE EVENT DATE: 20160318
